FAERS Safety Report 12915841 (Version 2)
Quarter: 2016Q4

REPORT INFORMATION
  Report Type: Report from Study
  Country: IT (occurrence: IT)
  Receive Date: 20161107
  Receipt Date: 20161107
  Transmission Date: 20170207
  Serious: Yes (Death)
  Sender: FDA-Public Use
  Company Number: IT-CIPLA LTD.-2016IT20710

PATIENT

DRUGS (4)
  1. ZOFENOPRIL [Suspect]
     Active Substance: ZOFENOPRIL
     Indication: CARDIOVASCULAR EVENT PROPHYLAXIS
     Dosage: 7.5 MG, BID ON DAYS 1 AND 2
     Route: 065
  2. ACETYLSALICYLIC ACID [Suspect]
     Active Substance: ASPIRIN
     Indication: CARDIOVASCULAR EVENT PROPHYLAXIS
     Dosage: 100 MG, EVENING DOSE ON DAYS 1 TO 4 AND 100 MG FROM DAY 5, FOR 12 MONTHS
     Route: 065
  3. ZOFENOPRIL [Suspect]
     Active Substance: ZOFENOPRIL
     Dosage: 15 MG, BID ON DAYS 3 AND 4
     Route: 065
  4. RAMIPRIL. [Suspect]
     Active Substance: RAMIPRIL
     Indication: CARDIOVASCULAR EVENT PROPHYLAXIS
     Dosage: 5 MG, BID FROM DAY 5, FOR 12 MONTHS
     Route: 065

REACTIONS (1)
  - Cardiovascular disorder [Fatal]
